FAERS Safety Report 4716596-6 (Version None)
Quarter: 2005Q3

REPORT INFORMATION
  Report Type: 
  Country: None (occurrence: None)
  Receive Date: 20050714
  Receipt Date: 20050629
  Transmission Date: 20060218
  Serious: Yes (Other)
  Sender: FDA-Public Use
  Company Number: 2005BI012415

PATIENT
  Age: 52 Year
  Sex: Male

DRUGS (6)
  1. AVONEX [Suspect]
     Indication: MULTIPLE SCLEROSIS
     Dosage: 30 UG; QW; IM
     Route: 030
     Dates: start: 20050211, end: 20050406
  2. LISINOPRIL [Concomitant]
  3. DOXAZOSIN [Concomitant]
  4. FLUOXETINE [Concomitant]
  5. AMITRIPTYLINE HCL [Concomitant]
  6. ACETAMINOPHEN [Concomitant]

REACTIONS (3)
  - BLADDER PAPILLOMA [None]
  - BLOOD URINE PRESENT [None]
  - URINARY TRACT INFECTION [None]
